FAERS Safety Report 8279444-6 (Version None)
Quarter: 2012Q2

REPORT INFORMATION
  Report Type: 
  Country: None (occurrence: None)
  Receive Date: 20120412
  Receipt Date: 20111109
  Transmission Date: 20120825
  Serious: No
  Sender: FDA-Public Use
  Company Number: US-ASTRAZENECA-2011SE67840

PATIENT
  Age: 42 Year
  Sex: Female
  Weight: 68 kg

DRUGS (3)
  1. NEXIUM [Suspect]
     Indication: GASTROOESOPHAGEAL REFLUX DISEASE
     Route: 048
     Dates: start: 20111004
  2. MACROBID [Concomitant]
  3. CODEINE [Concomitant]

REACTIONS (3)
  - GASTRITIS [None]
  - ORAL DISCOMFORT [None]
  - OESOPHAGEAL PAIN [None]
